FAERS Safety Report 19242049 (Version 2)
Quarter: 2021Q3

REPORT INFORMATION
  Report Type: Spontaneous
  Country: US (occurrence: US)
  Receive Date: 20210510
  Receipt Date: 20210716
  Transmission Date: 20211014
  Serious: No
  Sender: FDA-Public Use
  Company Number: US-PFIZER INC-2021365188

PATIENT
  Age: 62 Year
  Sex: Female

DRUGS (4)
  1. METOPROLOL. [Concomitant]
     Active Substance: METOPROLOL
     Dosage: UNK
  2. XELJANZ [Suspect]
     Active Substance: TOFACITINIB CITRATE
     Indication: RHEUMATOID ARTHRITIS
     Dosage: 5 MG, 2X/DAY
     Route: 048
     Dates: start: 202102
  3. PREDNISONE. [Concomitant]
     Active Substance: PREDNISONE
     Dosage: UNK, AS NEEDED, (PREDNISONE (PRN) (AS NEEDED),
  4. MODERNA COVID?19 VACCINE [Suspect]
     Active Substance: CX-024414
     Dosage: SINGLE DOSE
     Dates: start: 20210308, end: 20210308

REACTIONS (1)
  - Feeling cold [Recovering/Resolving]

NARRATIVE: CASE EVENT DATE: 20210309
